FAERS Safety Report 7029372-9 (Version None)
Quarter: 2010Q4

REPORT INFORMATION
  Report Type: 
  Country: None (occurrence: None)
  Receive Date: 20101005
  Receipt Date: 20100927
  Transmission Date: 20110411
  Serious: Yes (Death)
  Sender: FDA-Public Use
  Company Number: PHHY2010NL64303

PATIENT
  Sex: Male

DRUGS (1)
  1. ZOMETA [Suspect]
     Indication: VASCULAR NEOPLASM
     Dosage: 4 MG/5 ML
     Route: 042
     Dates: end: 20100730

REACTIONS (1)
  - DEATH [None]
